FAERS Safety Report 7296079-2 (Version None)
Quarter: 2011Q1

REPORT INFORMATION
  Report Type: 
  Country: None (occurrence: None)
  Receive Date: 20110216
  Receipt Date: 20110209
  Transmission Date: 20110831
  Serious: Yes (Death)
  Sender: FDA-Public Use
  Company Number: DE-ELI_LILLY_AND_COMPANY-DE201102003237

PATIENT

DRUGS (4)
  1. GEMZAR [Suspect]
     Indication: BLADDER TRANSITIONAL CELL CARCINOMA
     Dosage: 1000 MG/M2, UNK
  2. DEXAMETHASONE [Concomitant]
     Dosage: 10 MG/M2, UNK
     Route: 042
  3. TAXOL [Concomitant]
     Indication: BLADDER TRANSITIONAL CELL CARCINOMA
     Dosage: 175 MG/M2, UNK
  4. CLEMASTIN [Concomitant]
     Dosage: 2 MG/M2, UNK
     Route: 042

REACTIONS (1)
  - PULMONARY FIBROSIS [None]
